FAERS Safety Report 24265141 (Version 1)
Quarter: 2024Q3

REPORT INFORMATION
  Report Type: Spontaneous
  Country: GB (occurrence: GB)
  Receive Date: 20240829
  Receipt Date: 20240829
  Transmission Date: 20241017
  Serious: Yes (Hospitalization)
  Sender: MYLAN
  Company Number: GB-MYLANLABS-2024M1078627

PATIENT
  Age: 65 Year
  Sex: Female

DRUGS (5)
  1. CYCLOSPORINE [Suspect]
     Active Substance: CYCLOSPORINE
     Indication: Aplasia pure red cell
     Dosage: UNK
     Route: 065
  2. CYCLOPHOSPHAMIDE [Suspect]
     Active Substance: CYCLOPHOSPHAMIDE
     Indication: Aplasia pure red cell
     Dosage: UNK
     Route: 065
  3. RITUXIMAB [Suspect]
     Active Substance: RITUXIMAB
     Indication: Aplasia pure red cell
     Dosage: UNK,RECEIVED ONE DOSE
     Route: 065
  4. ROXADUSTAT [Concomitant]
     Active Substance: ROXADUSTAT
     Indication: Nephrogenic anaemia
     Dosage: UNK
     Route: 065
  5. IRON [Concomitant]
     Active Substance: IRON
     Indication: Nephrogenic anaemia
     Dosage: UNK
     Route: 042

REACTIONS (2)
  - COVID-19 [Unknown]
  - Drug ineffective [Unknown]
